FAERS Safety Report 14673306 (Version 1)
Quarter: 2018Q1

REPORT INFORMATION
  Report Type: Spontaneous
  Country: FR (occurrence: FR)
  Receive Date: 20180323
  Receipt Date: 20180323
  Transmission Date: 20180509
  Serious: Yes (Death, Other)
  Sender: FDA-Public Use
  Company Number: FR-SUN PHARMACEUTICAL INDUSTRIES LTD-2018RR-166452

PATIENT
  Age: 16 Year
  Sex: Male

DRUGS (23)
  1. TEMOZOLOMIDE. [Suspect]
     Active Substance: TEMOZOLOMIDE
     Indication: METASTASES TO BONE
     Dosage: 150 MG/M2, DAILY, FIRST CYCLE
     Route: 048
  2. SONIDEGIB [Suspect]
     Active Substance: SONIDEGIB
     Dosage: 400 MG, QD
     Route: 065
  3. MORPHINE [Concomitant]
     Active Substance: MORPHINE
     Indication: PAIN
     Route: 065
  4. CARBOPLATIN. [Suspect]
     Active Substance: CARBOPLATIN
     Indication: METASTASES TO BONE
  5. CISPLATIN. [Suspect]
     Active Substance: CISPLATIN
     Indication: METASTASES TO BONE
  6. THIOTEPA. [Suspect]
     Active Substance: THIOTEPA
  7. TEMOZOLOMIDE. [Suspect]
     Active Substance: TEMOZOLOMIDE
     Indication: METASTASES TO BONE MARROW
     Dosage: UNK
     Route: 048
  8. CARBOPLATIN. [Suspect]
     Active Substance: CARBOPLATIN
     Indication: METASTASES TO BONE MARROW
     Route: 065
  9. CISPLATIN. [Suspect]
     Active Substance: CISPLATIN
     Indication: METASTASES TO BONE MARROW
     Route: 065
  10. CYCLOPHOSPHAMIDE. [Suspect]
     Active Substance: CYCLOPHOSPHAMIDE
     Indication: METASTASES TO BONE MARROW
     Dosage: UNK
     Route: 065
     Dates: end: 201212
  11. CELECOXIB. [Suspect]
     Active Substance: CELECOXIB
     Indication: PRODUCT USED FOR UNKNOWN INDICATION
     Dosage: UNK
     Route: 065
     Dates: end: 201212
  12. IRINOTECAN [Suspect]
     Active Substance: IRINOTECAN
     Indication: METASTASES TO BONE MARROW
     Route: 065
  13. VISMODEGIB. [Suspect]
     Active Substance: VISMODEGIB
  14. SONIDEGIB [Suspect]
     Active Substance: SONIDEGIB
     Indication: MEDULLOBLASTOMA RECURRENT
     Dosage: 400 MG, QD
     Route: 065
     Dates: start: 20160909
  15. IRINOTECAN [Suspect]
     Active Substance: IRINOTECAN
     Indication: METASTASES TO BONE
  16. CYCLOPHOSPHAMIDE. [Suspect]
     Active Substance: CYCLOPHOSPHAMIDE
     Indication: METASTASES TO BONE
  17. SONIDEGIB [Suspect]
     Active Substance: SONIDEGIB
     Dosage: 800 MG, QD
     Route: 065
     Dates: end: 20161102
  18. ETOPOSIDE. [Suspect]
     Active Substance: ETOPOSIDE
     Indication: METASTASES TO BONE MARROW
     Dosage: UNK
     Route: 065
     Dates: end: 201212
  19. TEMOZOLOMIDE. [Suspect]
     Active Substance: TEMOZOLOMIDE
     Indication: MEDULLOBLASTOMA RECURRENT
     Dosage: UNK
     Route: 065
     Dates: end: 201212
  20. TEMOZOLOMIDE. [Suspect]
     Active Substance: TEMOZOLOMIDE
     Dosage: 200 MG/M2, DAILY
     Route: 048
     Dates: end: 201608
  21. ETOPOSIDE. [Suspect]
     Active Substance: ETOPOSIDE
     Indication: METASTASES TO BONE
  22. BUSULFAN. [Suspect]
     Active Substance: BUSULFAN
     Indication: METASTASES TO BONE MARROW
     Route: 065
  23. ITRACONAZOLE. [Suspect]
     Active Substance: ITRACONAZOLE
     Indication: MEDULLOBLASTOMA RECURRENT
     Dosage: 150 MG, BID
     Route: 065
     Dates: start: 201510

REACTIONS (22)
  - Muscle spasms [Unknown]
  - C-reactive protein increased [Unknown]
  - Malignant neoplasm progression [None]
  - Stem cell transplant [None]
  - Metastases to bone [None]
  - Acquired gene mutation [Unknown]
  - Drug effect incomplete [Unknown]
  - Pain [Unknown]
  - Blood creatine phosphokinase increased [Unknown]
  - Alopecia [Unknown]
  - Hypoaesthesia [Unknown]
  - Urinary retention [Unknown]
  - Vomiting [Unknown]
  - Spinal cord compression [None]
  - Dysgeusia [Unknown]
  - Metastases to spine [None]
  - Drug ineffective [Unknown]
  - Disease progression [Fatal]
  - Paraparesis [Unknown]
  - Medulloblastoma recurrent [None]
  - Diarrhoea [Unknown]
  - Disease recurrence [Unknown]

NARRATIVE: CASE EVENT DATE: 20161102
